FAERS Safety Report 16171433 (Version 1)
Quarter: 2019Q2

REPORT INFORMATION
  Report Type: Spontaneous
  Country: DE (occurrence: DE)
  Receive Date: 20190408
  Receipt Date: 20190408
  Transmission Date: 20190711
  Serious: Yes (Hospitalization)
  Sender: FDA-Public Use
  Company Number: DE-MYLANLABS-2018M1069884

PATIENT
  Age: 50 Year
  Sex: Male

DRUGS (12)
  1. OLANZAPINE. [Suspect]
     Active Substance: OLANZAPINE
     Dosage: 10 MILLIGRAM, QD
     Route: 048
     Dates: start: 20130806, end: 20130807
  2. OLANZAPINE. [Suspect]
     Active Substance: OLANZAPINE
     Indication: SCHIZOAFFECTIVE DISORDER
     Dosage: 20 MILLIGRAM, QD
     Route: 065
     Dates: start: 2007
  3. OLANZAPINE. [Suspect]
     Active Substance: OLANZAPINE
     Indication: MANIA
     Dosage: 20 MILLIGRAM, QD
     Route: 065
  4. OLANZAPINE. [Suspect]
     Active Substance: OLANZAPINE
     Indication: DEPRESSION
     Dosage: DAILY DOSE: 15 MG MILLIGRAM(S) EVERY DAY
     Route: 048
     Dates: start: 20130623, end: 20130716
  5. OLANZAPINE. [Suspect]
     Active Substance: OLANZAPINE
     Dosage: 15 MILLIGRAM, QD
     Route: 048
     Dates: start: 20130805, end: 20130805
  6. OLANZAPINE. [Suspect]
     Active Substance: OLANZAPINE
     Dosage: DAILY DOSE: 20 MG MILLIGRAM(S) EVERY DAY
     Route: 048
     Dates: start: 20130717, end: 20130723
  7. OLANZAPINE. [Suspect]
     Active Substance: OLANZAPINE
     Dosage: 25 MILLIGRAM, QD
     Route: 048
     Dates: start: 20130724, end: 20130801
  8. LEVOTHYROXINE. [Concomitant]
     Active Substance: LEVOTHYROXINE
     Indication: HYPOTHYROIDISM
     Dosage: 50 ?G, QD
  9. OLANZAPINE. [Suspect]
     Active Substance: OLANZAPINE
     Dosage: 25 MILLIGRAM, QD
     Route: 065
     Dates: start: 20130723
  10. PROTHIPENDYL [Concomitant]
     Active Substance: PROTHIPENDYL
     Indication: INITIAL INSOMNIA
     Dosage: 80 MILLIGRAM, QD
  11. OLANZAPINE. [Suspect]
     Active Substance: OLANZAPINE
     Dosage: 5 MILLIGRAM, QD
     Route: 048
     Dates: start: 20130808, end: 20130809
  12. OLANZAPINE. [Suspect]
     Active Substance: OLANZAPINE
     Dosage: DAILY DOSE: 20 MG MILLIGRAM(S) EVERY DAY
     Route: 048
     Dates: start: 20130802, end: 20130804

REACTIONS (6)
  - Sleep disorder [Recovered/Resolved]
  - Bipolar disorder [Unknown]
  - Supraventricular extrasystoles [Unknown]
  - Prescribed overdose [Unknown]
  - Somnambulism [Recovered/Resolved]
  - Hyperhidrosis [Unknown]
